FAERS Safety Report 10371199 (Version 1)
Quarter: 2014Q3

REPORT INFORMATION
  Report Type: Spontaneous
  Country: US (occurrence: None)
  Receive Date: 20140806
  Receipt Date: 20140806
  Transmission Date: 20150326
  Serious: Yes (Hospitalization)
  Sender: FDA-Public Use
  Company Number: 2014EXPUS00057

PATIENT
  Sex: Female

DRUGS (14)
  1. MACRODANTIN [Concomitant]
     Active Substance: NITROFURANTOIN
  2. NIACIN (NICOTINIC ACID) [Concomitant]
  3. ACIDOLPHILUS (LACTOBACILLUS ACIDOLPHILUS) [Concomitant]
  4. TOFRANIL (IMIPRAMINE HYDROCHLORIDE) [Concomitant]
  5. ZANAFLEX [Concomitant]
     Active Substance: TIZANIDINE HYDROCHLORIDE
  6. VITAMIN E (TOCOPHERYL ACETATE) [Concomitant]
  7. AMARYL [Concomitant]
     Active Substance: GLIMEPIRIDE
  8. PROTONIX [Concomitant]
     Active Substance: PANTOPRAZOLE SODIUM
  9. TENORMIN [Concomitant]
     Active Substance: ATENOLOL
  10. EXPAREL [Suspect]
     Active Substance: BUPIVACAINE
     Indication: PROCEDURAL PAIN
     Dosage: ONE 20 ML DOSE DILUTED WITH 20 ML SALINE
     Dates: start: 20140716, end: 20140716
  11. DITROPAN (OXYBUTYNIN HYDROCHLORIDE) [Concomitant]
  12. NORVASC [Concomitant]
     Active Substance: AMLODIPINE BESYLATE
  13. CITALOPRAM HBR (CITALOPRAM HYDROBROMIDE) [Concomitant]
  14. COZAAR [Concomitant]
     Active Substance: LOSARTAN POTASSIUM

REACTIONS (3)
  - Nausea [None]
  - Abdominal pain [None]
  - Vomiting [None]

NARRATIVE: CASE EVENT DATE: 20140718
